FAERS Safety Report 23939234 (Version 1)
Quarter: 2024Q2

REPORT INFORMATION
  Report Type: Spontaneous
  Country: GB (occurrence: GB)
  Receive Date: 20240605
  Receipt Date: 20240605
  Transmission Date: 20240716
  Serious: Yes (Other)
  Sender: FDA-Public Use
  Company Number: None

PATIENT

DRUGS (6)
  1. TRELEGY ELLIPTA [Suspect]
     Active Substance: FLUTICASONE FUROATE\UMECLIDINIUM BROMIDE\VILANTEROL TRIFENATATE
     Indication: Ill-defined disorder
     Dosage: 1 DF, QD (92?G/DOSE / 55?G/DOSE / 22?G/DOSE)
     Route: 055
  2. ACLIDINIUM BROMIDE\FORMOTEROL FUMARATE [Concomitant]
     Active Substance: ACLIDINIUM BROMIDE\FORMOTEROL FUMARATE
     Indication: Ill-defined disorder
     Dosage: 1 DF, BID
     Route: 055
     Dates: start: 20240524
  3. BISOPROLOL [Concomitant]
     Active Substance: BISOPROLOL\BISOPROLOL FUMARATE
     Indication: Ill-defined disorder
     Dosage: 1 DF, QD
     Route: 065
     Dates: start: 20201120
  4. DOXAZOSIN [Concomitant]
     Active Substance: DOXAZOSIN MESYLATE
     Indication: Ill-defined disorder
     Dosage: 2 DF, QD
     Route: 065
     Dates: start: 20201120
  5. SILDENAFIL [Concomitant]
     Active Substance: SILDENAFIL
     Indication: Ill-defined disorder
     Dosage: UNK (USE AS DIRECTED - TAKE 1 HOUR BEFORE SEXUAL INT...)
     Route: 065
     Dates: start: 20201120, end: 20240524
  6. ALBUTEROL [Concomitant]
     Active Substance: ALBUTEROL
     Indication: Ill-defined disorder
     Dosage: 2 DF (AS NECESSARY)
     Route: 055
     Dates: start: 20231002

REACTIONS (3)
  - Headache [Recovered/Resolved]
  - Myalgia [Recovered/Resolved]
  - Musculoskeletal pain [Unknown]
